FAERS Safety Report 20514402 (Version 1)
Quarter: 2022Q1

REPORT INFORMATION
  Report Type: Spontaneous
  Country: GB (occurrence: GB)
  Receive Date: 20220224
  Receipt Date: 20220224
  Transmission Date: 20220423
  Serious: Yes (Other)
  Sender: FDA-Public Use
  Company Number: GB-MHRA-MED-202202151342111420-OZIUO

PATIENT
  Age: 57 Year
  Sex: Female
  Weight: 83 kg

DRUGS (1)
  1. LEVOFLOXACIN [Suspect]
     Active Substance: LEVOFLOXACIN
     Indication: Appendicectomy
     Dosage: UNK
     Dates: start: 20220121, end: 20220130

REACTIONS (3)
  - Musculoskeletal stiffness [Unknown]
  - Swelling [Unknown]
  - Arthralgia [Not Recovered/Not Resolved]

NARRATIVE: CASE EVENT DATE: 20220130
